FAERS Safety Report 7814396-1 (Version None)
Quarter: 2011Q4

REPORT INFORMATION
  Report Type: 
  Country: None (occurrence: None)
  Receive Date: 20111014
  Receipt Date: 20111004
  Transmission Date: 20120403
  Serious: Yes (Hospitalization)
  Sender: FDA-Public Use
  Company Number: PHHY2011EC89787

PATIENT
  Sex: Female

DRUGS (2)
  1. AMPICILINA [Concomitant]
     Dosage: UNK
  2. DIOVAN HCT [Suspect]
     Indication: HYPERTENSION
     Dosage: 1 DF (80 MG VALS AND 12.5MG HYDR), DAILY

REACTIONS (2)
  - BLADDER DISORDER [None]
  - CONDITION AGGRAVATED [None]
